FAERS Safety Report 15384949 (Version 1)
Quarter: 2018Q3

REPORT INFORMATION
  Report Type: Spontaneous
  Country: US (occurrence: US)
  Receive Date: 20180914
  Receipt Date: 20180914
  Transmission Date: 20181010
  Serious: No
  Sender: FDA-Public Use
  Company Number: US-PFIZER INC-2018366799

PATIENT
  Sex: Female

DRUGS (1)
  1. IDARUBICIN HCL [Suspect]
     Active Substance: IDARUBICIN HYDROCHLORIDE
     Indication: LEUKAEMIA
     Dosage: UNK

REACTIONS (1)
  - Feeling abnormal [Unknown]
